FAERS Safety Report 5285009-0 (Version None)
Quarter: 2007Q2

REPORT INFORMATION
  Report Type: 
  Country: None (occurrence: None)
  Receive Date: 20070403
  Receipt Date: 20070402
  Transmission Date: 20071010
  Serious: Yes (Hospitalization)
  Sender: FDA-Public Use
  Company Number: FRWYE310102APR07

PATIENT
  Age: 46 Year
  Sex: Male

DRUGS (1)
  1. RHINADVIL [Suspect]
     Indication: RHINITIS
     Route: 048
     Dates: start: 20060501, end: 20060501

REACTIONS (4)
  - ANAPHYLACTOID REACTION [None]
  - FACE OEDEMA [None]
  - LOSS OF CONSCIOUSNESS [None]
  - OEDEMA PERIPHERAL [None]
